FAERS Safety Report 23682657 (Version 2)
Quarter: 2024Q4

REPORT INFORMATION
  Report Type: Spontaneous
  Country: DE (occurrence: DE)
  Receive Date: 20240328
  Receipt Date: 20241220
  Transmission Date: 20250115
  Serious: Yes (Other)
  Sender: TORRENT PHARMA INC.
  Company Number: None

PATIENT
  Sex: Female

DRUGS (2)
  1. DULOXETINE [Suspect]
     Active Substance: DULOXETINE
     Indication: Depression
     Route: 065
     Dates: start: 20240205
  2. BUPROPION [Suspect]
     Active Substance: BUPROPION
     Indication: Depression
     Route: 065
     Dates: start: 20210506, end: 202202

REACTIONS (1)
  - Hepatic enzyme increased [Unknown]
